FAERS Safety Report 6101715-X (Version None)
Quarter: 2009Q1

REPORT INFORMATION
  Report Type: 
  Country: None (occurrence: None)
  Receive Date: 20090304
  Receipt Date: 20090227
  Transmission Date: 20090719
  Serious: Yes (Life-Threatening, Other)
  Sender: FDA-Public Use
  Company Number: A0767701A

PATIENT
  Age: 25 Year
  Sex: Male

DRUGS (2)
  1. WELLBUTRIN XL [Suspect]
     Indication: DRUG USE FOR UNKNOWN INDICATION
     Dosage: 300MG PER DAY
     Route: 048
     Dates: start: 20090202, end: 20090204
  2. NO CONCURRENT MEDICATION [Concomitant]

REACTIONS (4)
  - BRONCHOSPASM [None]
  - DRUG HYPERSENSITIVITY [None]
  - MALAISE [None]
  - URTICARIA [None]
